FAERS Safety Report 14239559 (Version 14)
Quarter: 2019Q2

REPORT INFORMATION
  Report Type: Report from Study
  Country: US (occurrence: US)
  Receive Date: 20171130
  Receipt Date: 20190606
  Transmission Date: 20190711
  Serious: Yes (Hospitalization, Disabling, Other)
  Sender: FDA-Public Use
  Company Number: US-009507513-1711USA008545

PATIENT
  Sex: Female
  Weight: 169.16 kg

DRUGS (2)
  1. IMPLANON [Suspect]
     Active Substance: ETONOGESTREL
     Indication: CONTRACEPTION
     Dosage: 1 IMPLANT(STRENGTH: 68 MG)
     Route: 059
     Dates: start: 20100518, end: 20181212
  2. NIZORAL [Concomitant]
     Active Substance: KETOCONAZOLE
     Dosage: APPLY DAILY
     Route: 065

REACTIONS (31)
  - Chills [Unknown]
  - Pleuritic pain [Unknown]
  - Pelvic pain [Not Recovered/Not Resolved]
  - Pyrexia [Unknown]
  - Deep vein thrombosis [Recovered/Resolved]
  - Gastrooesophageal reflux disease [Unknown]
  - Pulmonary embolism [Recovered/Resolved]
  - Dizziness [Not Recovered/Not Resolved]
  - Nausea [Unknown]
  - Pulmonary embolism [Recovered/Resolved]
  - Pain in extremity [Not Recovered/Not Resolved]
  - Adverse event [Unknown]
  - Blood pressure increased [Unknown]
  - Weight increased [Unknown]
  - Headache [Recovered/Resolved]
  - Mood swings [Unknown]
  - Haemorrhage [Unknown]
  - Incorrect product administration duration [Unknown]
  - Chest pain [Unknown]
  - Pelvic inflammatory disease [Unknown]
  - Asthenia [Unknown]
  - Complication associated with device [Recovered/Resolved]
  - Menopause [Unknown]
  - Device dislocation [Recovered/Resolved]
  - Headache [Not Recovered/Not Resolved]
  - Exploratory operation [Recovered/Resolved]
  - Exposure to communicable disease [Unknown]
  - Atelectasis [Unknown]
  - Menorrhagia [Unknown]
  - Device breakage [Not Recovered/Not Resolved]
  - Product dose omission [Unknown]

NARRATIVE: CASE EVENT DATE: 2010
